FAERS Safety Report 24771605 (Version 1)
Quarter: 2024Q4

REPORT INFORMATION
  Report Type: Spontaneous
  Country: US (occurrence: US)
  Receive Date: 20241224
  Receipt Date: 20241224
  Transmission Date: 20250115
  Serious: No
  Sender: SUNOVION
  Company Number: US-SUMITOMO PHARMA SWITZERLAND GMBH-2024SPA005928

PATIENT

DRUGS (13)
  1. GEMTESA [Suspect]
     Active Substance: VIBEGRON
     Indication: Urinary incontinence
     Dosage: 75 MG, QD, AT 10 O^CLOCK AT NIGHT
     Dates: start: 20241121
  2. BUPROPION [Concomitant]
     Active Substance: BUPROPION
     Indication: Grief reaction
     Dosage: 150 MG, BID
  3. GABAPENTIN [Concomitant]
     Active Substance: GABAPENTIN
     Indication: Neuropathy peripheral
     Dosage: 300 MG, QID, 600 MG IN THE MORNING AND 600 MG AT NIGHT
  4. PROBENECID/COLCH [Concomitant]
     Indication: Product used for unknown indication
     Dosage: 500/5 MG ONCE A DAY IN THE MORNING AND ONE AT NIGHT
  5. OMEPRAZOLE [Concomitant]
     Active Substance: OMEPRAZOLE
     Indication: Dyspepsia
     Dosage: 20 MG, QD, IN MORNING
  6. RANOLAZINE [Concomitant]
     Active Substance: RANOLAZINE
     Indication: Cardiac disorder
     Dosage: 500 MG, BID
  7. METOPROLOL [Concomitant]
     Active Substance: METOPROLOL
     Indication: Cardiac disorder
     Dosage: 50 MG, QD
  8. ENALAPRIL [Concomitant]
     Active Substance: ENALAPRIL
     Indication: Cardiac disorder
     Dosage: 20 MG, QD, IN MORNING
  9. ROSUVASTATIN [Concomitant]
     Active Substance: ROSUVASTATIN
     Indication: Blood cholesterol
     Dosage: 40 MG, QD
  10. LANTUS [Concomitant]
     Active Substance: INSULIN GLARGINE
     Dosage: 10 UNITS IN THE MORNING AS NEEDED AND 20 UNITS AT NIGHT
  11. AMLODIPINE [Concomitant]
     Active Substance: AMLODIPINE BESYLATE
     Indication: Cardiac disorder
     Dosage: 5 MG, QD, IN MORNING
  12. VITAMIN E [Concomitant]
     Active Substance: .ALPHA.-TOCOPHEROL
     Indication: Vitamin supplementation
     Dosage: 400 UNITS OTHER
  13. VITAMIN C [Concomitant]
     Active Substance: ASCORBIC ACID
     Indication: Vitamin supplementation
     Dosage: 1000 MG

REACTIONS (3)
  - Abdominal distension [Unknown]
  - Bowel movement irregularity [Unknown]
  - Therapeutic response decreased [Unknown]
